FAERS Safety Report 7213127-6 (Version None)
Quarter: 2011Q1

REPORT INFORMATION
  Report Type: 
  Country: None (occurrence: None)
  Receive Date: 20110106
  Receipt Date: 20101227
  Transmission Date: 20110831
  Serious: Yes (Other)
  Sender: FDA-Public Use
  Company Number: PHHY2010JP88836

PATIENT
  Age: 48 Year
  Sex: Male

DRUGS (2)
  1. ZOMETA [Suspect]
     Indication: METASTASES TO BONE
     Route: 041
  2. OXALIPLATIN [Interacting]
     Dosage: UNK

REACTIONS (2)
  - RENAL IMPAIRMENT [None]
  - DRUG INTERACTION [None]
